FAERS Safety Report 15503820 (Version 1)
Quarter: 2018Q4

REPORT INFORMATION
  Report Type: Spontaneous
  Country: US (occurrence: US)
  Receive Date: 20181009
  Receipt Date: 20181009
  Transmission Date: 20190205
  Serious: Yes (Death, Life-Threatening, Hospitalization)
  Sender: FDA-Public Use
  Company Number: None

PATIENT
  Age: 72 Year
  Sex: Male
  Weight: 138 kg

DRUGS (2)
  1. TRULICITY [Suspect]
     Active Substance: DULAGLUTIDE
     Indication: TYPE 2 DIABETES MELLITUS
     Dosage: ?          OTHER FREQUENCY:WEEKLY;?
     Route: 058
     Dates: start: 20170326
  2. BYETTA [Concomitant]
     Active Substance: EXENATIDE
     Dates: start: 20081001, end: 20170325

REACTIONS (2)
  - Obstructive pancreatitis [None]
  - Product substitution issue [None]

NARRATIVE: CASE EVENT DATE: 20180917
